FAERS Safety Report 7519220-2 (Version None)
Quarter: 2011Q2

REPORT INFORMATION
  Report Type: 
  Country: None (occurrence: None)
  Receive Date: 20110602
  Receipt Date: 20110214
  Transmission Date: 20111010
  Serious: No
  Sender: FDA-Public Use
  Company Number: US-BRISTOL-MYERS SQUIBB COMPANY-15554157

PATIENT
  Age: 61 Year
  Sex: Female

DRUGS (8)
  1. LISINOPRIL [Concomitant]
  2. SIMVASTATIN [Concomitant]
  3. XYZAL [Concomitant]
  4. KOMBIGLYZE XR [Suspect]
     Dosage: 1 DF=2.5/1000 MG (2 TABLETS DAILY),KOMBIGLYZE XR
     Dates: start: 20110207
  5. FISH OIL [Concomitant]
  6. OMEPRAZOLE [Concomitant]
  7. UBIQUINONE-50 [Concomitant]
  8. HYDROXYZINE [Concomitant]

REACTIONS (1)
  - SKIN DISCOLOURATION [None]
